FAERS Safety Report 7817053-0 (Version None)
Quarter: 2011Q4

REPORT INFORMATION
  Report Type: 
  Country: None (occurrence: None)
  Receive Date: 20111017
  Receipt Date: 20111002
  Transmission Date: 20120403
  Serious: Yes (Other)
  Sender: FDA-Public Use
  Company Number: PHHY2011BR87529

PATIENT
  Age: 41 Year
  Sex: Male

DRUGS (6)
  1. RASILEZ (ALISKIREN) [Concomitant]
     Dosage: 300 MG, DAILY
  2. CHLORTHALIDONE [Concomitant]
     Dosage: UNK
  3. CYCLOSPORINE [Concomitant]
     Dosage: 150 MG, BID
  4. OMEPRAZOLE [Suspect]
     Dosage: UNK
  5. DIOVAN [Suspect]
     Indication: HYPERTENSION
     Dosage: 320 MG,  DAILY
  6. METICORTEN [Suspect]
     Dosage: 80 MG, UNK

REACTIONS (5)
  - GENERALISED OEDEMA [None]
  - COLITIS ULCERATIVE [None]
  - GENERAL PHYSICAL HEALTH DETERIORATION [None]
  - PROTEINURIA [None]
  - DIARRHOEA [None]
